FAERS Safety Report 19657366 (Version 2)
Quarter: 2022Q3

REPORT INFORMATION
  Report Type: Spontaneous
  Country: NO (occurrence: NO)
  Receive Date: 20210804
  Receipt Date: 20220829
  Transmission Date: 20221027
  Serious: Yes (Other)
  Sender: FDA-Public Use
  Company Number: NO-OTSUKA-2021_006980

PATIENT
  Sex: Female

DRUGS (8)
  1. ZOLOFT [Suspect]
     Active Substance: SERTRALINE HYDROCHLORIDE
     Indication: Obsessive thoughts
     Dosage: UNK
  2. ZOLOFT [Suspect]
     Active Substance: SERTRALINE HYDROCHLORIDE
     Indication: Schizophrenia
  3. ZOLOFT [Suspect]
     Active Substance: SERTRALINE HYDROCHLORIDE
     Indication: Compulsions
  4. ABILIFY [Suspect]
     Active Substance: ARIPIPRAZOLE
     Indication: Compulsions
     Dosage: 20 MG, 1X/DAY
     Dates: start: 20110101, end: 20201201
  5. ABILIFY [Suspect]
     Active Substance: ARIPIPRAZOLE
     Indication: Obsessive thoughts
  6. ABILIFY [Suspect]
     Active Substance: ARIPIPRAZOLE
     Indication: Schizophrenia
  7. OXAZEPAM [Concomitant]
     Active Substance: OXAZEPAM
     Indication: Sedation
     Dosage: 10 MG, 2X/DAY
  8. LAMICTAL [Concomitant]
     Active Substance: LAMOTRIGINE
     Indication: Affect lability
     Dosage: UNK

REACTIONS (8)
  - Suicidal ideation [Unknown]
  - Product dose omission issue [Unknown]
  - Obsessive-compulsive disorder [Unknown]
  - Depressed mood [Unknown]
  - Quality of life decreased [Unknown]
  - Impaired work ability [Unknown]
  - Anxiety [Unknown]
  - Restlessness [Unknown]

NARRATIVE: CASE EVENT DATE: 20191130
